FAERS Safety Report 6241878-9 (Version None)
Quarter: 2009Q2

REPORT INFORMATION
  Report Type: 
  Country: None (occurrence: None)
  Receive Date: 20090622
  Receipt Date: 20090609
  Transmission Date: 20091009
  Serious: Yes (Hospitalization, Disabling)
  Sender: FDA-Public Use
  Company Number: 2009-02291

PATIENT
  Age: 81 Year
  Sex: Male
  Weight: 56.7 kg

DRUGS (16)
  1. VELCADE [Suspect]
     Indication: MULTIPLE MYELOMA
     Dosage: 2.6 MG, INTRAVENOUS
     Route: 042
     Dates: start: 20090302, end: 20090423
  2. THALIDOMIDE [Suspect]
     Indication: MULTIPLE MYELOMA
     Dosage: 100 MG, ORAL
     Route: 048
     Dates: start: 20090302, end: 20090428
  3. DEXAMETHASONE TAB [Suspect]
     Indication: MULTIPLE MYELOMA
     Dosage: 20 MG, ORAL
     Route: 048
     Dates: start: 20090302, end: 20090324
  4. NEURONTIN [Concomitant]
  5. OXYCONTIN (OXYCODONE HYDRQCHLORIDE) [Concomitant]
  6. ASPIRIN [Concomitant]
  7. PERCOCET [Concomitant]
  8. AMBIEN [Concomitant]
  9. GLUCOTROL XL [Concomitant]
  10. ACYCLOVIR [Concomitant]
  11. REGLAN [Concomitant]
  12. LOPRESSOR [Concomitant]
  13. PRILOSEC [Concomitant]
  14. ZOMETA [Concomitant]
  15. CALCIUM (CALCIUM) [Concomitant]
  16. VITAMIN D [Concomitant]

REACTIONS (12)
  - ANOREXIA [None]
  - APHASIA [None]
  - ASTHENIA [None]
  - BARRETT'S OESOPHAGUS [None]
  - BLOOD PRESSURE INCREASED [None]
  - FAILURE TO THRIVE [None]
  - FALL [None]
  - FATIGUE [None]
  - NEUROPATHY PERIPHERAL [None]
  - OESOPHAGEAL ADENOCARCINOMA [None]
  - VERTEBRAL WEDGING [None]
  - WEIGHT DECREASED [None]
